FAERS Safety Report 5448782-4 (Version None)
Quarter: 2007Q3

REPORT INFORMATION
  Report Type: 
  Country: None (occurrence: None)
  Receive Date: 20070911
  Receipt Date: 20070608
  Transmission Date: 20080115
  Serious: Yes (Other)
  Sender: FDA-Public Use
  Company Number: US-BRISTOL-MYERS SQUIBB COMPANY-13808472

PATIENT
  Sex: Female
  Weight: 59 kg

DRUGS (4)
  1. EMSAM [Suspect]
     Indication: DEPRESSION
     Route: 062
     Dates: start: 20070501
  2. LOTENSIN [Concomitant]
  3. PHENERGAN HCL [Concomitant]
  4. FIORINAL [Concomitant]

REACTIONS (4)
  - BLOOD PRESSURE INCREASED [None]
  - HEADACHE [None]
  - MUSCULOSKELETAL STIFFNESS [None]
  - NAUSEA [None]
